FAERS Safety Report 9466279 (Version 2)
Quarter: 2013Q3

REPORT INFORMATION
  Report Type: Spontaneous
  Country: FR (occurrence: FR)
  Receive Date: 20130820
  Receipt Date: 20130903
  Transmission Date: 20140515
  Serious: Yes (Hospitalization)
  Sender: FDA-Public Use
  Company Number: PHHY2013FR088412

PATIENT
  Age: 13 Year
  Sex: Female

DRUGS (1)
  1. PARACETAMOL [Suspect]
     Dosage: 30 G

REACTIONS (8)
  - Renal failure [Recovering/Resolving]
  - Oliguria [Recovered/Resolved]
  - Renal injury [Unknown]
  - Hepatic failure [Unknown]
  - Hepatocellular injury [Unknown]
  - Toxicity to various agents [Unknown]
  - Drug level increased [Unknown]
  - Intentional overdose [Unknown]
